FAERS Safety Report 8738418 (Version 2)
Quarter: 2013Q4

REPORT INFORMATION
  Report Type: Spontaneous
  Country: US (occurrence: US)
  Receive Date: 20120823
  Receipt Date: 20131106
  Transmission Date: 20140711
  Serious: Yes (Death, Life-Threatening, Hospitalization, Other)
  Sender: FDA-Public Use
  Company Number: US-009507513-1208USA006074

PATIENT
  Age: 58 Year
  Sex: Male

DRUGS (1)
  1. INTEGRILIN [Suspect]
     Indication: TROPONIN INCREASED
     Dosage: UNK

REACTIONS (2)
  - Haemorrhage [Fatal]
  - Catheterisation cardiac [Unknown]
